FAERS Safety Report 8594407-9 (Version None)
Quarter: 2012Q3

REPORT INFORMATION
  Report Type: 
  Country: None (occurrence: None)
  Receive Date: 20120815
  Receipt Date: 20120806
  Transmission Date: 20120928
  Serious: No
  Sender: FDA-Public Use
  Company Number: 2007BI006132

PATIENT

DRUGS (3)
  1. BETASERON [Concomitant]
     Indication: PRODUCT USED FOR UNKNOWN INDICATION
  2. REBIF [Concomitant]
     Indication: PRODUCT USED FOR UNKNOWN INDICATION
  3. AVONEX [Suspect]
     Indication: MULTIPLE SCLEROSIS
     Route: 030
     Dates: start: 20061109, end: 20100322

REACTIONS (7)
  - MUSCLE ATROPHY [None]
  - AMNESIA [None]
  - FATIGUE [None]
  - BACK PAIN [None]
  - MEMORY IMPAIRMENT [None]
  - SPEECH DISORDER [None]
  - MULTIPLE SCLEROSIS RELAPSE [None]
